FAERS Safety Report 16709316 (Version 1)
Quarter: 2019Q3

REPORT INFORMATION
  Report Type: Spontaneous
  Country: US (occurrence: US)
  Receive Date: 20190816
  Receipt Date: 20190816
  Transmission Date: 20191004
  Serious: No
  Sender: FDA-Public Use
  Company Number: US-009507513-1907USA013892

PATIENT
  Age: 61 Year
  Sex: Male
  Weight: 65 kg

DRUGS (8)
  1. ABACAVIR (+) DOLUTEGRAVIR SODIUM (+) LAMIVUDINE [Suspect]
     Active Substance: ABACAVIR SULFATE\DOLUTEGRAVIR SODIUM\LAMIVUDINE
     Indication: HIV INFECTION
     Dosage: DTG/ABC/3TC 50/600/300 MG DAILY (QAM)
  2. ATAZANAVIR. [Interacting]
     Active Substance: ATAZANAVIR
     Indication: HIV INFECTION
     Dosage: 400 MG, DAILY, DAY 1-30
  3. COBICISTAT (+) DARUNAVIR [Interacting]
     Active Substance: COBICISTAT\DARUNAVIR ETHANOLATE
     Indication: HIV INFECTION
     Dosage: DRV/COBI 800/150 MG DAILY (A.M.), DAY 30?175
  4. DOLUTEGRAVIR [Interacting]
     Active Substance: DOLUTEGRAVIR
     Indication: HIV INFECTION
     Dosage: 50 MG DAILY (P.M.), DAY 30?175
  5. ISENTRESS [Interacting]
     Active Substance: RALTEGRAVIR POTASSIUM
     Dosage: 400MG, TWICE DAILY, DAY 1-30
     Route: 048
  6. VORICONAZOLE. [Interacting]
     Active Substance: VORICONAZOLE
     Indication: BRONCHOPULMONARY ASPERGILLOSIS
     Dosage: 200MG, TWICE DAILY, DAY 1-198
     Route: 048
  7. ISENTRESS [Suspect]
     Active Substance: RALTEGRAVIR POTASSIUM
     Indication: HIV INFECTION
     Dosage: 400 MG BID (PRE-VORI)
     Route: 048
  8. TENOFOVIR DISOPROXIL FUMARATE. [Interacting]
     Active Substance: TENOFOVIR DISOPROXIL FUMARATE
     Indication: HIV INFECTION
     Dosage: 300 MG, DAILY, DAY 1-30, (PRIOR USE FOR 10 YEARS)

REACTIONS (2)
  - Labelled drug-drug interaction medication error [Unknown]
  - Drug interaction [Unknown]
